FAERS Safety Report 4909409-0 (Version None)
Quarter: 2006Q1

REPORT INFORMATION
  Report Type: 
  Country: None (occurrence: None)
  Receive Date: 20060210
  Receipt Date: 20060210
  Transmission Date: 20060701
  Serious: Yes (Hospitalization)
  Sender: FDA-Public Use
  Company Number: None

PATIENT
  Age: 38 Year
  Sex: Female
  Weight: 115.6672 kg

DRUGS (17)
  1. OXALIPLATIN [Suspect]
     Indication: COLON CANCER
     Dosage: 85MG/M2  IV
     Route: 042
     Dates: start: 20051219, end: 20060103
  2. BEVACIZUMAB [Suspect]
     Indication: COLON CANCER
     Dosage: 5MG/KG  IV
     Route: 042
     Dates: start: 20051219, end: 20060103
  3. FLUOROURACIL [Suspect]
     Dosage: 400MG/M2   IV
     Route: 042
     Dates: start: 20051219, end: 20060103
  4. ERLOTINIB [Suspect]
     Dosage: 150MG/M2  ORAL
     Route: 048
     Dates: start: 20051219, end: 20060103
  5. FLUOROURACIL [Suspect]
     Dosage: 5FU  2400MG/M2  IV
     Route: 042
     Dates: start: 20051219, end: 20060103
  6. KYTRIL [Concomitant]
  7. COMPAZINE [Concomitant]
  8. CLEOCIN [Concomitant]
  9. KEFLEX [Concomitant]
  10. MULTI-VITAMIN [Concomitant]
  11. FOLIC ACID [Concomitant]
  12. IRON [Concomitant]
  13. NIACIN [Concomitant]
  14. IBUPROFEN [Concomitant]
  15. TYLENOL [Concomitant]
  16. ALBUTEROL [Concomitant]
  17. FLOVENT [Concomitant]

REACTIONS (6)
  - CHILLS [None]
  - MALAISE [None]
  - MYALGIA [None]
  - PAIN [None]
  - PERIPHERAL SENSORY NEUROPATHY [None]
  - THERAPY NON-RESPONDER [None]
